FAERS Safety Report 8539954-0 (Version None)
Quarter: 2012Q3

REPORT INFORMATION
  Report Type: 
  Country: None (occurrence: None)
  Receive Date: 20120726
  Receipt Date: 20120718
  Transmission Date: 20120928
  Serious: Yes (Hospitalization)
  Sender: FDA-Public Use
  Company Number: US-UCBSA-059406

PATIENT
  Age: 44 Year
  Sex: Male

DRUGS (6)
  1. CIPROFLOXACIN HCL [Concomitant]
     Indication: BACTERIAL INFECTION
     Dosage: 250 BID; TOTAL DAILY DOSE: 500
  2. PROTONIX [Concomitant]
     Indication: GASTROOESOPHAGEAL REFLUX DISEASE
     Dosage: 40
  3. CIMZIA [Suspect]
     Indication: SMALL INTESTINAL OBSTRUCTION
     Route: 058
     Dates: start: 20100301
  4. ZOLOFT [Concomitant]
     Dosage: 50; TOTAL DAILY DOSE: 50
  5. WELLBUTRIN [Concomitant]
     Indication: ANXIETY
     Dosage: 150 BID 300
  6. CIMZIA [Suspect]
     Route: 058

REACTIONS (10)
  - ABSCESS [None]
  - INTESTINAL STENOSIS [None]
  - WEIGHT DECREASED [None]
  - ILEITIS [None]
  - DRUG INEFFECTIVE [None]
  - DIARRHOEA [None]
  - SMALL INTESTINAL OBSTRUCTION [None]
  - FISTULA [None]
  - ABDOMINAL ABSCESS [None]
  - ABDOMINAL PAIN [None]
